FAERS Safety Report 17656931 (Version 2)
Quarter: 2020Q2

REPORT INFORMATION
  Report Type: Spontaneous
  Country: FR (occurrence: FR)
  Receive Date: 20200410
  Receipt Date: 20200609
  Transmission Date: 20200713
  Serious: Yes (Death, Life-Threatening, Hospitalization)
  Sender: FDA-Public Use
  Company Number: FR-STRIDES ARCOLAB LIMITED-2020SP004633

PATIENT
  Age: 65 Year
  Sex: Female

DRUGS (2)
  1. TACROLIMUS. [Suspect]
     Active Substance: TACROLIMUS
     Indication: IMMUNOSUPPRESSANT DRUG THERAPY
  2. TACROLIMUS. [Suspect]
     Active Substance: TACROLIMUS
     Indication: RENAL TRANSPLANT
     Dosage: UNK
     Route: 065

REACTIONS (10)
  - Hyperammonaemia [Unknown]
  - Mental status changes [Not Recovered/Not Resolved]
  - Metabolic encephalopathy [Unknown]
  - Sepsis [Unknown]
  - Infection [Fatal]
  - Status epilepticus [Recovered/Resolved]
  - Central nervous system lesion [Not Recovered/Not Resolved]
  - Cytotoxic oedema [Not Recovered/Not Resolved]
  - Neurotoxicity [Not Recovered/Not Resolved]
  - Ureaplasma infection [Fatal]
